FAERS Safety Report 4656419-7 (Version None)
Quarter: 2005Q2

REPORT INFORMATION
  Report Type: 
  Country: None (occurrence: None)
  Receive Date: 20050504
  Receipt Date: 20050427
  Transmission Date: 20051028
  Serious: Yes (Hospitalization)
  Sender: FDA-Public Use
  Company Number: 2005PK00750

PATIENT
  Age: 63 Year
  Sex: Female
  Weight: 65 kg

DRUGS (1)
  1. NOLVADEX [Suspect]
     Indication: BREAST CANCER
     Dosage: 20 MG DAILY PO
     Route: 048
     Dates: start: 20030319

REACTIONS (6)
  - ADNEXA UTERI CYST [None]
  - FALLOPIAN TUBE DISORDER [None]
  - OVARIAN ADENOMA [None]
  - OVARIAN CYST [None]
  - UTERINE LEIOMYOMA [None]
  - UTERINE POLYP [None]
